FAERS Safety Report 9387075 (Version 1)
Quarter: 2013Q3

REPORT INFORMATION
  Report Type: Spontaneous
  Country: EG (occurrence: EG)
  Receive Date: 20130708
  Receipt Date: 20130708
  Transmission Date: 20140515
  Serious: Yes (Hospitalization)
  Sender: FDA-Public Use
  Company Number: PHHY2013EG069388

PATIENT
  Age: 6 Year
  Sex: Female

DRUGS (1)
  1. CEFTRIAXONE [Suspect]
     Indication: LOWER RESPIRATORY TRACT INFECTION
     Dosage: 1 G, QD
     Route: 030
     Dates: start: 20130630, end: 20130701

REACTIONS (2)
  - Chromaturia [Unknown]
  - Incorrect route of drug administration [Unknown]
